FAERS Safety Report 25250312 (Version 1)
Quarter: 2025Q2

REPORT INFORMATION
  Report Type: Spontaneous
  Country: CA (occurrence: CA)
  Receive Date: 20250429
  Receipt Date: 20250429
  Transmission Date: 20250716
  Serious: Yes (Hospitalization)
  Sender: PFIZER
  Company Number: CA-PFIZER INC-202500088520

PATIENT
  Age: 85 Year
  Sex: Female
  Weight: 72 kg

DRUGS (10)
  1. FRAGMIN [Suspect]
     Active Substance: DALTEPARIN SODIUM
     Indication: Thrombosis prophylaxis
     Dosage: 5000 IU, 1X/DAY
     Route: 058
  2. KETOROLAC TROMETHAMINE [Suspect]
     Active Substance: KETOROLAC TROMETHAMINE
     Indication: Procedural pain
     Dosage: 30 MG, 3X/DAY
     Route: 042
  3. KETOROLAC TROMETHAMINE [Suspect]
     Active Substance: KETOROLAC TROMETHAMINE
     Dosage: 30 MG, 3X/DAY
     Route: 042
  4. AMIODARONE [Concomitant]
     Active Substance: AMIODARONE
  5. ERTAPENEM [Concomitant]
     Active Substance: ERTAPENEM
  6. HYDROMORPHONE [Concomitant]
     Active Substance: HYDROMORPHONE
  7. METOPROLOL [Concomitant]
     Active Substance: METOPROLOL
     Route: 065
  8. ONDANSETRON [Concomitant]
     Active Substance: ONDANSETRON
  9. PIPERACILLIN SODIUM\TAZOBACTAM SODIUM [Concomitant]
     Active Substance: PIPERACILLIN SODIUM\TAZOBACTAM SODIUM
  10. VANCOMYCIN [Concomitant]
     Active Substance: VANCOMYCIN

REACTIONS (1)
  - Gastrointestinal haemorrhage [Recovering/Resolving]
